FAERS Safety Report 19908676 (Version 11)
Quarter: 2022Q2

REPORT INFORMATION
  Report Type: Spontaneous
  Country: CA (occurrence: CA)
  Receive Date: 20211002
  Receipt Date: 20220622
  Transmission Date: 20220721
  Serious: Yes (Hospitalization, Other)
  Sender: FDA-Public Use
  Company Number: CA-CELLTRION INC.-2021CA013356

PATIENT

DRUGS (10)
  1. INFLECTRA [Suspect]
     Active Substance: INFLIXIMAB-DYYB
     Indication: Crohn^s disease
     Dosage: 400 MG INDUCTION DOSES WEEK 0, 2 AND 6, THEN EVERY 8 WEEKS
     Route: 042
     Dates: start: 20210811
  2. INFLECTRA [Suspect]
     Active Substance: INFLIXIMAB-DYYB
     Dosage: 400 MG INDUCTION DOSES WEEK 0, 2 AND 6, THEN EVERY 8 WEEKS
     Route: 042
     Dates: start: 20210826
  3. INFLECTRA [Suspect]
     Active Substance: INFLIXIMAB-DYYB
     Dosage: 400 MG INDUCTION DOSES WEEK 0, 2 AND 6, THEN EVERY 8 WEEKS
     Route: 042
     Dates: start: 20210921
  4. INFLECTRA [Suspect]
     Active Substance: INFLIXIMAB-DYYB
     Dosage: 400 MG INDUCTION DOSES WEEK 0, 2 AND 6, THEN EVERY 8 WEEKS
     Route: 042
     Dates: start: 20211116
  5. INFLECTRA [Suspect]
     Active Substance: INFLIXIMAB-DYYB
     Dosage: 400 MG INDUCTION DOSES WEEK 0, 2 AND 6, THEN EVERY 8 WEEKS
     Route: 042
     Dates: start: 20220111
  6. INFLECTRA [Suspect]
     Active Substance: INFLIXIMAB-DYYB
     Dosage: 400 MG INDUCTION DOSES WEEK 0, 2 AND 6, THEN EVERY 8 WEEKS
     Route: 042
     Dates: start: 20220308
  7. INFLECTRA [Suspect]
     Active Substance: INFLIXIMAB-DYYB
     Dosage: 800 MG INDUCTION DOSES WEEK 0, 2 AND 6, THEN EVERY 8 WEEKS
     Route: 042
     Dates: start: 20220429
  8. INFLECTRA [Suspect]
     Active Substance: INFLIXIMAB-DYYB
     Dosage: 800 MG EVERY 4 WEEKS
     Route: 042
     Dates: start: 20220610
  9. CORTISONE [Concomitant]
     Active Substance: CORTISONE
     Dosage: UNK
     Dates: start: 20210814
  10. PREDNISONE [Concomitant]
     Active Substance: PREDNISONE
     Dosage: 1 DF DOSAGE NOT AVAILABLE
     Route: 065

REACTIONS (17)
  - Condition aggravated [Not Recovered/Not Resolved]
  - Myocardial infarction [Unknown]
  - Coronary artery disease [Unknown]
  - Off label use [Unknown]
  - Off label use [Unknown]
  - Intentional product use issue [Unknown]
  - Off label use [Unknown]
  - Skin plaque [Unknown]
  - Pruritus [Unknown]
  - Skin swelling [Unknown]
  - Erythema [Unknown]
  - Dizziness [Not Recovered/Not Resolved]
  - Muscle spasms [Recovered/Resolved]
  - Muscular weakness [Not Recovered/Not Resolved]
  - Malaise [Unknown]
  - Arthralgia [Not Recovered/Not Resolved]
  - Weight increased [Unknown]

NARRATIVE: CASE EVENT DATE: 20210801
